FAERS Safety Report 12361013 (Version 5)
Quarter: 2018Q2

REPORT INFORMATION
  Report Type: Report from Study
  Country: DE (occurrence: DE)
  Receive Date: 20160512
  Receipt Date: 20180504
  Transmission Date: 20180711
  Serious: Yes (Hospitalization, Other)
  Sender: FDA-Public Use
  Company Number: DE-INCYTE CORPORATION-2015IN005870

PATIENT

DRUGS (9)
  1. JAKAVI [Suspect]
     Active Substance: RUXOLITINIB
     Indication: ESSENTIAL THROMBOCYTHAEMIA
     Dosage: 40 MG, QD
     Route: 048
     Dates: start: 20141115, end: 20141216
  2. EUTHYROX [Concomitant]
     Active Substance: LEVOTHYROXINE SODIUM
     Indication: HYPOTHYROIDISM
     Dosage: 50 UG, QD
     Route: 048
  3. JAKAVI [Suspect]
     Active Substance: RUXOLITINIB
     Dosage: 30 MG, QD
     Route: 048
     Dates: start: 20141217, end: 20150211
  4. JAKAVI [Suspect]
     Active Substance: RUXOLITINIB
     Indication: ESSENTIAL THROMBOCYTHAEMIA
     Dosage: 30 MG, QD
     Route: 048
     Dates: start: 20140217, end: 20141114
  5. JAKAVI [Suspect]
     Active Substance: RUXOLITINIB
     Dosage: 30 MG, QD
     Route: 048
     Dates: start: 20150520, end: 20150701
  6. JAKAVI [Suspect]
     Active Substance: RUXOLITINIB
     Indication: MYELOPROLIFERATIVE NEOPLASM
     Dosage: 40 MG, QD
     Route: 048
     Dates: start: 20131008, end: 20140216
  7. JAKAVI [Suspect]
     Active Substance: RUXOLITINIB
     Dosage: 40 MG, QD
     Route: 048
     Dates: start: 20150212, end: 20150519
  8. CITALOPRAM [Concomitant]
     Active Substance: CITALOPRAM HYDROBROMIDE
     Indication: DEPRESSION
     Dosage: 20 MG, QD
     Route: 048
  9. JAKAVI [Suspect]
     Active Substance: RUXOLITINIB
     Dosage: 40 MG, QD
     Route: 048
     Dates: start: 20150702

REACTIONS (13)
  - Pulmonary hypertension [Recovering/Resolving]
  - Depression [Not Recovered/Not Resolved]
  - Haematuria [Recovered/Resolved]
  - Urinary tract infection [Recovered/Resolved]
  - Deep vein thrombosis [Unknown]
  - Lymphocyte percentage decreased [Unknown]
  - Pollakiuria [Recovered/Resolved]
  - Pulmonary embolism [Recovered/Resolved]
  - C-reactive protein increased [Unknown]
  - Urinary incontinence [Recovered/Resolved]
  - Haemoglobin decreased [Unknown]
  - Flatulence [Unknown]
  - Platelet count increased [Unknown]

NARRATIVE: CASE EVENT DATE: 20150717
